FAERS Safety Report 19219738 (Version 2)
Quarter: 2021Q2

REPORT INFORMATION
  Report Type: Spontaneous
  Country: PK (occurrence: PK)
  Receive Date: 20210506
  Receipt Date: 20210528
  Transmission Date: 20210717
  Serious: Yes (Death, Life-Threatening, Other)
  Sender: FDA-Public Use
  Company Number: PK-AMGEN-PAKSP2021067061

PATIENT

DRUGS (6)
  1. FLUDARABINE [Concomitant]
     Active Substance: FLUDARABINE PHOSPHATE
     Dosage: 120 MILLIGRAM/SQ. METER
     Route: 065
  2. CYCLOSPORIN [Concomitant]
     Active Substance: CYCLOSPORINE
     Indication: GRAFT VERSUS HOST DISEASE
     Dosage: 3 MILLIGRAM/KILOGRAM, BID
     Route: 042
  3. FILGRASTIM [Suspect]
     Active Substance: FILGRASTIM
     Indication: PRODUCT USED FOR UNKNOWN INDICATION
     Dosage: 5 MICROGRAM/KILOGRAM
     Route: 058
  4. METHOTREXATE. [Concomitant]
     Active Substance: METHOTREXATE
     Indication: GRAFT VERSUS HOST DISEASE
     Dosage: UNK
     Route: 065
  5. CYCLOPHOSPHAMIDE. [Concomitant]
     Active Substance: CYCLOPHOSPHAMIDE
     Dosage: 120 MILLIGRAM/KILOGRAM
     Route: 065
  6. ANTITHYMOCYTE IMMUNOGLOBULIN [Concomitant]
     Active Substance: THYMOCYTE IMMUNE GLOBULIN NOS
     Dosage: 20 MILLIGRAM/KILOGRAM

REACTIONS (15)
  - Chronic graft versus host disease [Fatal]
  - Acute graft versus host disease [Fatal]
  - Chronic graft versus host disease in liver [Unknown]
  - Liver injury [Fatal]
  - Transplant failure [Fatal]
  - Acute hepatic failure [Fatal]
  - Disseminated tuberculosis [Fatal]
  - Acute graft versus host disease in liver [Unknown]
  - Chronic graft versus host disease in skin [Fatal]
  - Death [Fatal]
  - Acute graft versus host disease in skin [Unknown]
  - Chronic graft versus host disease oral [Fatal]
  - Chronic graft versus host disease in eye [Fatal]
  - Hepatic infection [Fatal]
  - Acute graft versus host disease in intestine [Fatal]
